FAERS Safety Report 11494431 (Version 2)
Quarter: 2015Q3

REPORT INFORMATION
  Report Type: Spontaneous
  Country: US (occurrence: US)
  Receive Date: 20150911
  Receipt Date: 20150911
  Transmission Date: 20151125
  Serious: No
  Sender: FDA-Public Use
  Company Number: US-ROCHE-1010953

PATIENT
  Sex: Female

DRUGS (3)
  1. METHADONE [Concomitant]
     Active Substance: METHADONE HYDROCHLORIDE
     Indication: BACK PAIN
     Route: 065
  2. RIBAVIRIN. [Suspect]
     Active Substance: RIBAVIRIN
     Indication: HEPATITIS C
     Route: 065
     Dates: start: 20070604
  3. PEGASYS [Suspect]
     Active Substance: PEGINTERFERON ALFA-2A
     Indication: HEPATITIS C
     Route: 065
     Dates: start: 20070604

REACTIONS (4)
  - White blood cell count decreased [Unknown]
  - Helicobacter infection [Unknown]
  - Weight decreased [Unknown]
  - Anxiety [Unknown]
